FAERS Safety Report 4592276-5 (Version None)
Quarter: 2005Q1

REPORT INFORMATION
  Report Type: 
  Country: None (occurrence: None)
  Receive Date: 20050228
  Receipt Date: 20041112
  Transmission Date: 20050727
  Serious: No
  Sender: FDA-Public Use
  Company Number: US-BRISTOL-MYERS SQUIBB COMPANY-12764965

PATIENT
  Sex: Male
  Weight: 63 kg

DRUGS (2)
  1. ABILIFY [Suspect]
     Indication: PSYCHOTIC DISORDER
     Route: 048
     Dates: start: 20041102
  2. LITHIUM [Concomitant]

REACTIONS (2)
  - HYPOAESTHESIA ORAL [None]
  - TREMOR [None]
